FAERS Safety Report 6165186-X (Version None)
Quarter: 2009Q2

REPORT INFORMATION
  Report Type: 
  Country: None (occurrence: None)
  Receive Date: 20090421
  Receipt Date: 20090414
  Transmission Date: 20091009
  Serious: Yes (Death, Hospitalization)
  Sender: FDA-Public Use
  Company Number: 2009SP006106

PATIENT
  Age: 58 Year
  Sex: Male

DRUGS (7)
  1. PEG-INTRON [Suspect]
     Indication: DRUG USE FOR UNKNOWN INDICATION
     Dosage: 100 MCG; QW; SC
     Route: 058
     Dates: start: 20081216, end: 20090313
  2. METHYLPREDNISOLONE 4MG TAB [Concomitant]
  3. ACECLOFENAC [Concomitant]
  4. IRON [Concomitant]
  5. FERROGRAD FOLIC [Concomitant]
  6. AFLAMIN /01140001/ [Concomitant]
  7. MEDROL [Concomitant]

REACTIONS (11)
  - APHASIA [None]
  - ASTHENIA [None]
  - DEHYDRATION [None]
  - GENERAL PHYSICAL HEALTH DETERIORATION [None]
  - HYPOMAGNESAEMIA [None]
  - HYPONATRAEMIA [None]
  - HYPOTENSION [None]
  - PANCREATITIS ACUTE [None]
  - PNEUMONIA [None]
  - RESPIRATORY FAILURE [None]
  - SHIFT TO THE LEFT [None]
